FAERS Safety Report 6790250-1 (Version None)
Quarter: 2010Q2

REPORT INFORMATION
  Report Type: 
  Country: None (occurrence: None)
  Receive Date: 20100624
  Receipt Date: 20100616
  Transmission Date: 20101027
  Serious: Yes (Hospitalization)
  Sender: FDA-Public Use
  Company Number: US-BRISTOL-MYERS SQUIBB COMPANY-15078124

PATIENT
  Age: 57 Year
  Sex: Male
  Weight: 90 kg

DRUGS (3)
  1. CISPLATIN [Suspect]
     Indication: OESOPHAGEAL SQUAMOUS CELL CARCINOMA
     Dosage: 3RD DOSE:02MAR10,4TH DOSE:09MAR10,LAST DOSE:23MAR10(6TH DOSE)
     Dates: start: 20100216, end: 20100323
  2. TAXOL [Suspect]
     Indication: OESOPHAGEAL SQUAMOUS CELL CARCINOMA
     Dosage: 3RD DOSE:02MAR10,4TH DOSE:09MAR10,LAST DOSE:23MAR10(6TH DOSE)
     Dates: start: 20100216, end: 20100323
  3. RADIATION THERAPY [Suspect]
     Indication: OESOPHAGEAL SQUAMOUS CELL CARCINOMA
     Dosage: 1 DF= 5040CGY. NO OF FRACTIONS:28. NO OF ELAPSED DAYS:37.LAST TREATMENT:26MAR10
     Dates: start: 20100216, end: 20100326

REACTIONS (11)
  - ASPIRATION [None]
  - DEHYDRATION [None]
  - DYSPHAGIA [None]
  - FAILURE TO THRIVE [None]
  - FATIGUE [None]
  - INFECTION [None]
  - NAUSEA [None]
  - OESOPHAGEAL PAIN [None]
  - OESOPHAGITIS [None]
  - REFLUX GASTRITIS [None]
  - VOMITING [None]
